FAERS Safety Report 7926915-5 (Version None)
Quarter: 2011Q4

REPORT INFORMATION
  Report Type: 
  Country: None (occurrence: None)
  Receive Date: 20111116
  Receipt Date: 20111101
  Transmission Date: 20120403
  Serious: Yes (Other)
  Sender: FDA-Public Use
  Company Number: FK201102586

PATIENT
  Age: 35 Year
  Sex: Female

DRUGS (3)
  1. DOXORUBICN (DOXORUBICIN( [Concomitant]
  2. PACLITAXEL [Suspect]
     Indication: BREAST CANCER
  3. CYCLOPHOSPHAMIDE [Concomitant]

REACTIONS (4)
  - CAESAREAN SECTION [None]
  - MATERNAL DRUGS AFFECTING FOETUS [None]
  - PREMATURE BABY [None]
  - OLIGOHYDRAMNIOS [None]
